FAERS Safety Report 16063808 (Version 1)
Quarter: 2019Q1

REPORT INFORMATION
  Report Type: Spontaneous
  Country: PL (occurrence: PL)
  Receive Date: 20190312
  Receipt Date: 20190312
  Transmission Date: 20190418
  Serious: Yes (Life-Threatening)
  Sender: FDA-Public Use
  Company Number: PL-PFIZER INC-2019107010

PATIENT
  Sex: Male
  Weight: 63 kg

DRUGS (2)
  1. CARBOPLATIN. [Suspect]
     Active Substance: CARBOPLATIN
     Indication: LUNG NEOPLASM MALIGNANT
     Dosage: 450 MG, 1X/DAY
     Route: 042
     Dates: start: 20190201, end: 20190201
  2. VINORELBINE [Suspect]
     Active Substance: VINORELBINE\VINORELBINE TARTRATE
     Indication: LUNG NEOPLASM MALIGNANT
     Dosage: 40 MG, 1X/DAY
     Route: 042
     Dates: start: 20190201, end: 20190207

REACTIONS (1)
  - Neutropenia [Unknown]

NARRATIVE: CASE EVENT DATE: 20190212
